FAERS Safety Report 5422598-7 (Version None)
Quarter: 2007Q3

REPORT INFORMATION
  Report Type: 
  Country: None (occurrence: None)
  Receive Date: 20070822
  Receipt Date: 20070809
  Transmission Date: 20080115
  Serious: Yes (Hospitalization, Other)
  Sender: FDA-Public Use
  Company Number: US-ELI_LILLY_AND_COMPANY-US200707001907

PATIENT
  Age: 80 Year
  Sex: Female

DRUGS (3)
  1. FORTEO [Suspect]
     Indication: OSTEOPOROSIS
     Dates: start: 20070515
  2. FORTEO [Suspect]
     Dosage: UNK, UNK
  3. SYNVISC [Concomitant]

REACTIONS (9)
  - ADVERSE DRUG REACTION [None]
  - ARTHRALGIA [None]
  - ARTHROPATHY [None]
  - GAIT DISTURBANCE [None]
  - JOINT EFFUSION [None]
  - JOINT SWELLING [None]
  - MEDICATION ERROR [None]
  - OEDEMA PERIPHERAL [None]
  - WALKING AID USER [None]
